FAERS Safety Report 10813947 (Version 1)
Quarter: 2015Q1

REPORT INFORMATION
  Report Type: Report from Study
  Country: US (occurrence: US)
  Receive Date: 20150218
  Receipt Date: 20150218
  Transmission Date: 20150721
  Serious: No
  Sender: FDA-Public Use
  Company Number: US-ABBVIE-14K-163-1280908-00

PATIENT
  Sex: Female
  Weight: 65.83 kg

DRUGS (4)
  1. HUMIRA [Suspect]
     Active Substance: ADALIMUMAB
     Indication: PSORIATIC ARTHROPATHY
     Dates: start: 201407, end: 201407
  2. LEVOTHYROXINE [Concomitant]
     Active Substance: LEVOTHYROXINE
     Indication: PRODUCT USED FOR UNKNOWN INDICATION
  3. OMEPRAZOLE. [Concomitant]
     Active Substance: OMEPRAZOLE
     Indication: PRODUCT USED FOR UNKNOWN INDICATION
  4. HUMIRA [Suspect]
     Active Substance: ADALIMUMAB
     Dates: start: 201407

REACTIONS (4)
  - Psoriasis [Recovering/Resolving]
  - Nail pitting [Not Recovered/Not Resolved]
  - Nail discolouration [Not Recovered/Not Resolved]
  - Nail psoriasis [Recovering/Resolving]

NARRATIVE: CASE EVENT DATE: 2014
